FAERS Safety Report 5376006-5 (Version None)
Quarter: 2007Q3

REPORT INFORMATION
  Report Type: 
  Country: None (occurrence: None)
  Receive Date: 20070702
  Receipt Date: 20070619
  Transmission Date: 20080115
  Serious: Yes (Hospitalization)
  Sender: FDA-Public Use
  Company Number: PHBS2007JP10174

PATIENT
  Age: 71 Year
  Sex: Female

DRUGS (3)
  1. NEORAL [Suspect]
     Indication: RENAL TRANSPLANT
     Dosage: 100 MG/DAY
     Route: 048
     Dates: start: 19910101
  2. BREDININ [Suspect]
     Indication: RENAL TRANSPLANT
     Dosage: 50 MG/DAY
     Route: 065
     Dates: start: 19910101, end: 20070201
  3. MEVALOTIN [Concomitant]
     Indication: HYPERLIPIDAEMIA
     Dosage: 10 MG/DAY
     Route: 048
     Dates: start: 20070201

REACTIONS (11)
  - ANAEMIA [None]
  - C-REACTIVE PROTEIN INCREASED [None]
  - COLITIS ULCERATIVE [None]
  - DIARRHOEA [None]
  - GASTROINTESTINAL EROSION [None]
  - HAEMATOCHEZIA [None]
  - HAEMOGLOBIN DECREASED [None]
  - INFLAMMATION [None]
  - INTESTINAL ULCER [None]
  - RENAL CELL CARCINOMA STAGE UNSPECIFIED [None]
  - WHITE BLOOD CELL COUNT INCREASED [None]
